FAERS Safety Report 25505794 (Version 2)
Quarter: 2025Q3

REPORT INFORMATION
  Report Type: Report from Study
  Country: KR (occurrence: KR)
  Receive Date: 20250702
  Receipt Date: 20250715
  Transmission Date: 20251021
  Serious: No
  Sender: EMD SERONO INC
  Company Number: KR-MS202082_0010_019-0004-1

PATIENT
  Age: 77 Year
  Sex: Male
  Weight: 60 kg

DRUGS (4)
  1. BAVENCIO [Suspect]
     Active Substance: AVELUMAB
     Indication: Neoplasm malignant
  2. DOBESEL [Concomitant]
     Indication: Product used for unknown indication
     Dates: start: 20240312
  3. SYNERJET [Concomitant]
     Indication: Product used for unknown indication
     Dates: start: 20240730
  4. HIVINAL GOLD [Concomitant]
     Indication: Product used for unknown indication
     Dosage: 1TAB
     Dates: start: 20240312

REACTIONS (1)
  - Hyperkalaemia [Recovered/Resolved]

NARRATIVE: CASE EVENT DATE: 20241008
